FAERS Safety Report 4286280-4 (Version None)
Quarter: 2004Q1

REPORT INFORMATION
  Report Type: 
  Country: None (occurrence: None)
  Receive Date: 20040115
  Receipt Date: 20021125
  Transmission Date: 20041129
  Serious: Yes (Other)
  Sender: FDA-Public Use
  Company Number: NSADSS2002043153

PATIENT
  Sex: Male

DRUGS (1)
  1. DOXIL [Suspect]
     Indication: PROSTATE CANCER
     Dosage: 40 MG/M2, INTRAVENOUS DRIP
     Route: 041
     Dates: start: 20021125, end: 20021125

REACTIONS (4)
  - CYANOSIS [None]
  - DYSPNOEA [None]
  - HYPERSENSITIVITY [None]
  - HYPOTENSION [None]
